FAERS Safety Report 21397895 (Version 1)
Quarter: 2022Q3

REPORT INFORMATION
  Report Type: Spontaneous
  Country: US (occurrence: None)
  Receive Date: 20220930
  Receipt Date: 20220930
  Transmission Date: 20221027
  Serious: No
  Sender: FDA-Public Use
  Company Number: None

PATIENT
  Sex: 0

DRUGS (2)
  1. DUPIXENT [Suspect]
     Active Substance: DUPILUMAB
     Dosage: FREQUENCY : EVERY OTHER WEEK?
     Route: 058
     Dates: start: 20220420
  2. Dupixent Pen 300mg/2ml [Concomitant]
     Dates: start: 20220420

REACTIONS (3)
  - Device delivery system issue [None]
  - Needle issue [None]
  - Device malfunction [None]

NARRATIVE: CASE EVENT DATE: 20220929
